FAERS Safety Report 7480494-8 (Version None)
Quarter: 2011Q2

REPORT INFORMATION
  Report Type: 
  Country: None (occurrence: None)
  Receive Date: 20110516
  Receipt Date: 20110502
  Transmission Date: 20111010
  Serious: Yes (Hospitalization)
  Sender: FDA-Public Use
  Company Number: CA-JNJFOC-20110502019

PATIENT
  Sex: Female
  Weight: 87.7 kg

DRUGS (18)
  1. ACETAMINOPHEN AND CODEINE PHOSPHATE [Concomitant]
  2. METHOTREXATE [Concomitant]
  3. IRON SUPPLEMENT [Concomitant]
  4. REMICADE [Suspect]
     Indication: CROHN'S DISEASE
     Route: 042
     Dates: start: 20050113
  5. MULTI-VITAMINS [Concomitant]
  6. MESALAMINE [Concomitant]
  7. FOLIC ACID [Concomitant]
  8. CLONAZEPAM [Concomitant]
  9. CLONAZEPAM [Concomitant]
  10. ESCITALOPRAM [Concomitant]
  11. PRISTIQ [Concomitant]
  12. TOPIRAMATE [Concomitant]
  13. IMOVANE [Concomitant]
  14. PANTOLOC [Concomitant]
  15. TEMAZ [Concomitant]
  16. GRAVOL TAB [Concomitant]
  17. VITAMIN B-12 [Concomitant]
  18. CODEINE SULFATE [Concomitant]

REACTIONS (1)
  - DEPRESSION [None]
